FAERS Safety Report 18736422 (Version 1)
Quarter: 2021Q1

REPORT INFORMATION
  Report Type: Spontaneous
  Country: US (occurrence: US)
  Receive Date: 20210113
  Receipt Date: 20210113
  Transmission Date: 20210419
  Serious: Yes (Death, Hospitalization, Other)
  Sender: FDA-Public Use
  Company Number: US-009507513-2101USA000779

PATIENT
  Age: 84 Year
  Sex: Male
  Weight: 68 kg

DRUGS (10)
  1. ALFUZOSIN HYDROCHLORIDE. [Suspect]
     Active Substance: ALFUZOSIN HYDROCHLORIDE
     Dosage: UNK
     Dates: start: 2020, end: 2020
  2. SINEMET [Suspect]
     Active Substance: CARBIDOPA\LEVODOPA
     Dosage: UNK, TID
     Route: 048
     Dates: end: 202009
  3. LORAZEPAM. [Concomitant]
     Active Substance: LORAZEPAM
     Dosage: UNK
  4. AMLODIPINE [Concomitant]
     Active Substance: AMLODIPINE BESYLATE
     Dosage: UNK
  5. TAMSULOSIN HYDROCHLORIDE. [Concomitant]
     Active Substance: TAMSULOSIN HYDROCHLORIDE
     Dosage: UNK
  6. AMANTADINE. [Suspect]
     Active Substance: AMANTADINE HYDROCHLORIDE
     Indication: DYSKINESIA
     Dosage: 137 MILLIGRAM, HS
     Route: 048
     Dates: start: 20200728, end: 20200803
  7. AMANTADINE. [Suspect]
     Active Substance: AMANTADINE HYDROCHLORIDE
     Dosage: 274 MILLIGRAM, HS
     Route: 048
     Dates: start: 20200804, end: 20200829
  8. AMANTADINE. [Suspect]
     Active Substance: AMANTADINE HYDROCHLORIDE
     Dosage: 274 MILLIGRAM, HS
     Route: 048
     Dates: start: 202009, end: 202009
  9. CILOSTAZOL. [Concomitant]
     Active Substance: CILOSTAZOL
     Dosage: UNK
  10. METOPROLOL TARTRATE. [Concomitant]
     Active Substance: METOPROLOL TARTRATE
     Dosage: UNK

REACTIONS (14)
  - Parkinson^s disease [Unknown]
  - Abnormal dreams [Recovering/Resolving]
  - Respiratory failure [Unknown]
  - Balance disorder [Unknown]
  - Death [Fatal]
  - Delirium [Unknown]
  - Acute kidney injury [Unknown]
  - Urinary retention [Unknown]
  - Fall [Recovering/Resolving]
  - Dysuria [Unknown]
  - Hypertension [Unknown]
  - Asthenia [Not Recovered/Not Resolved]
  - Hallucination, auditory [Unknown]
  - Hypovolaemia [Unknown]

NARRATIVE: CASE EVENT DATE: 2020
